FAERS Safety Report 5046071-3 (Version None)
Quarter: 2006Q3

REPORT INFORMATION
  Report Type: 
  Country: None (occurrence: None)
  Receive Date: 20060710
  Receipt Date: 20060629
  Transmission Date: 20061208
  Serious: Yes (Other)
  Sender: FDA-Public Use
  Company Number: US-JNJFOC-20060606712

PATIENT
  Sex: Male

DRUGS (16)
  1. REMICADE [Suspect]
     Route: 042
  2. REMICADE [Suspect]
     Indication: RHEUMATOID ARTHRITIS
     Route: 042
  3. PLAQUENIL [Concomitant]
  4. METHOTREXATE [Concomitant]
  5. HUMIRA [Concomitant]
  6. ARAVA [Concomitant]
  7. NAPROSYN [Concomitant]
  8. ADVAR [Concomitant]
  9. FLOMAX [Concomitant]
  10. ZANTAC [Concomitant]
  11. LORTAB [Concomitant]
  12. PROZAC [Concomitant]
  13. FOLIC ACID [Concomitant]
  14. PREDNISONE TAB [Concomitant]
  15. CLARINEX [Concomitant]
  16. DIOVAN [Concomitant]

REACTIONS (1)
  - BASAL CELL CARCINOMA [None]
